FAERS Safety Report 4277388-8 (Version None)
Quarter: 2004Q1

REPORT INFORMATION
  Report Type: 
  Country: None (occurrence: None)
  Receive Date: 20040122
  Receipt Date: 20031120
  Transmission Date: 20041129
  Serious: Yes (Other)
  Sender: FDA-Public Use
  Company Number: 200321909GDDC

PATIENT
  Age: 63 Year
  Sex: Female

DRUGS (4)
  1. ARAVA [Suspect]
     Indication: RHEUMATOID ARTHRITIS
     Route: 048
     Dates: start: 20030301, end: 20030917
  2. MOBIC [Concomitant]
     Dosage: DOSE: UNK
  3. LIPITOR [Concomitant]
     Dosage: DOSE: UNK
  4. COD LIVER OIL [Concomitant]
     Dosage: DOSE: UNK

REACTIONS (3)
  - HEPATOTOXICITY [None]
  - NEPHROPATHY TOXIC [None]
  - SKIN NODULE [None]
